FAERS Safety Report 4992774-6 (Version None)
Quarter: 2006Q2

REPORT INFORMATION
  Report Type: 
  Country: None (occurrence: None)
  Receive Date: 20060504
  Receipt Date: 20060424
  Transmission Date: 20061013
  Serious: Yes (Hospitalization)
  Sender: FDA-Public Use
  Company Number: ES-ABBOTT-06P-144-0331523-00

PATIENT
  Age: 40 Year
  Sex: Female

DRUGS (4)
  1. HUMIRA [Suspect]
     Indication: RHEUMATOID ARTHRITIS
     Route: 058
     Dates: start: 20041201, end: 20060401
  2. DEFLAZACORT [Suspect]
     Indication: RHEUMATOID ARTHRITIS
     Route: 048
     Dates: start: 20041201
  3. METHOTREXATE [Concomitant]
     Indication: RHEUMATOID ARTHRITIS
     Route: 048
     Dates: start: 20041201
  4. NSAID'S [Concomitant]
     Indication: RHEUMATOID ARTHRITIS
     Dates: start: 20041201

REACTIONS (4)
  - ABDOMINAL DISTENSION [None]
  - DISSEMINATED TUBERCULOSIS [None]
  - LUNG INFILTRATION [None]
  - SINUSITIS [None]
